FAERS Safety Report 15635332 (Version 4)
Quarter: 2021Q3

REPORT INFORMATION
  Report Type: Spontaneous
  Country: DE (occurrence: DE)
  Receive Date: 20181120
  Receipt Date: 20210826
  Transmission Date: 20211014
  Serious: Yes (Hospitalization, Other)
  Sender: FDA-Public Use
  Company Number: DE-AUROBINDO-AUR-APL-2018-055608

PATIENT
  Age: 77 Year
  Sex: Male
  Weight: 95 kg

DRUGS (56)
  1. CEFPODOXIME [Suspect]
     Active Substance: CEFPODOXIME
     Dosage: 200 MILLIGRAM, ONCE A DAY
     Route: 048
     Dates: start: 20170602, end: 20170612
  2. CEFPODOXIME [Suspect]
     Active Substance: CEFPODOXIME
     Dosage: 400 MILLIGRAM, ONCE A DAY
     Route: 048
     Dates: start: 20170602, end: 20170612
  3. CAPECITABINE. [Suspect]
     Active Substance: CAPECITABINE
     Dosage: 3000 MILLIGRAM, 3 WEEK
     Route: 048
     Dates: start: 20161104, end: 20170727
  4. CAPECITABINE. [Suspect]
     Active Substance: CAPECITABINE
     Dosage: 2500 MILLIGRAM, 3 WEEK
     Route: 048
     Dates: start: 20161223, end: 20170105
  5. BEVACIZUMAB. [Suspect]
     Active Substance: BEVACIZUMAB
     Dosage: 712.5 MILLIGRAM, 3 WEEK
     Route: 042
     Dates: start: 20151218
  6. NOVALGIN [Concomitant]
     Dosage: 1500 MILLIGRAM, ONCE A DAY
     Route: 048
     Dates: start: 20160318
  7. FORTIMEL [Concomitant]
     Active Substance: DIETARY SUPPLEMENT
     Indication: WEIGHT DECREASED
     Dosage: UNK
     Route: 048
     Dates: end: 20160923
  8. GRANISETRON [Concomitant]
     Active Substance: GRANISETRON
     Indication: NAUSEA
     Dosage: 1 MILLIGRAM (DAY 1 OF CHEMOTHERAPY)
     Route: 042
     Dates: start: 20161128, end: 20170804
  9. PAPAVER SOMNIFERUM [Concomitant]
     Indication: PRODUCT USED FOR UNKNOWN INDICATION
     Dosage: UNK
     Route: 048
     Dates: start: 20161223
  10. CAPECITABINE. [Suspect]
     Active Substance: CAPECITABINE
     Dosage: 3000 MILLIGRAM, 3 WEEK
     Route: 048
     Dates: start: 20161014, end: 20161117
  11. BEVACIZUMAB. [Suspect]
     Active Substance: BEVACIZUMAB
     Dosage: 600 MILLIGRAM, 3 WEEK
     Route: 042
     Dates: start: 20160203
  12. BEVACIZUMAB. [Suspect]
     Active Substance: BEVACIZUMAB
     Dosage: 712.5 MILLIGRAM, 3 WEEK
     Route: 042
     Dates: start: 20160318
  13. NOVALGIN [Concomitant]
     Dosage: 500 MILLIGRAM, ONCE A DAY
     Route: 048
     Dates: start: 20160606
  14. VITAMIN B6 [Concomitant]
     Active Substance: PYRIDOXINE HYDROCHLORIDE
     Indication: PRODUCT USED FOR UNKNOWN INDICATION
     Dosage: UNK
     Route: 048
     Dates: start: 20161014
  15. PANTOPRAZOL [Concomitant]
     Active Substance: PANTOPRAZOLE SODIUM
     Indication: PRODUCT USED FOR UNKNOWN INDICATION
     Dosage: 40 MILLIGRAM, ONCE A DAY
     Route: 048
     Dates: start: 20151123
  16. IRINOTECAN [Concomitant]
     Active Substance: IRINOTECAN
     Indication: COLORECTAL CANCER
     Dosage: 200 MILLIGRAM, 3 WEEK
     Route: 042
     Dates: start: 20161128, end: 20170714
  17. CAPECITABINE. [Suspect]
     Active Substance: CAPECITABINE
     Dosage: 2000 MILLIGRAM, 3 WEEK
     Route: 048
     Dates: start: 20170224, end: 20170525
  18. CAPECITABINE. [Suspect]
     Active Substance: CAPECITABINE
     Dosage: 2000 MILLIGRAM, 3 WEEK
     Route: 048
     Dates: start: 20170621, end: 20170704
  19. BEVACIZUMAB. [Suspect]
     Active Substance: BEVACIZUMAB
     Dosage: 712.5 MILLIGRAM, 3 WEEK
     Route: 042
     Dates: start: 20160108
  20. PHENPROCOUMON [Concomitant]
     Active Substance: PHENPROCOUMON
     Indication: ATRIAL FIBRILLATION
     Dosage: ACCORDING TO QUICK VALUE
     Route: 048
  21. PHENPROCOUMON [Concomitant]
     Active Substance: PHENPROCOUMON
     Dosage: DEPENDING ON QUICK VALUE ()
     Route: 058
     Dates: start: 20151218, end: 20160922
  22. VOLTAREN [Concomitant]
     Active Substance: DICLOFENAC SODIUM
     Indication: PAIN IN EXTREMITY
     Dosage: UNK
     Route: 061
     Dates: start: 20160318
  23. TORASEMID [Concomitant]
     Active Substance: TORSEMIDE
     Indication: CARDIAC FAILURE
     Dosage: 5 MILLIGRAM, ONCE A DAY
     Route: 048
     Dates: start: 20150909
  24. METAMIZOL [Concomitant]
     Active Substance: METAMIZOLE SODIUM
     Indication: GROIN PAIN
     Dosage: 30 GTT
     Route: 048
     Dates: start: 20151123
  25. NOVALGIN [Concomitant]
     Indication: PRODUCT USED FOR UNKNOWN INDICATION
     Dosage: 500 MILLIGRAM, ONCE A DAY
     Route: 048
     Dates: start: 20160318
  26. CIPROFLOXACIN. [Concomitant]
     Active Substance: CIPROFLOXACIN
     Indication: PRODUCT USED FOR UNKNOWN INDICATION
     Dosage: 250 MILLIGRAM, ONCE A DAY
     Route: 048
     Dates: start: 20170512, end: 20170516
  27. DEXAMETHASONE. [Concomitant]
     Active Substance: DEXAMETHASONE
     Dosage: 8 MILLIGRAM, CYCLICAL
     Route: 042
     Dates: start: 20161128, end: 20170804
  28. VERGENTAN [Concomitant]
     Active Substance: ALIZAPRIDE HYDROCHLORIDE
     Indication: NAUSEA
     Dosage: 50 MILLIGRAM, ONCE A DAY
     Route: 048
     Dates: start: 20151128
  29. LINEZOLID. [Concomitant]
     Active Substance: LINEZOLID
     Indication: PRODUCT USED FOR UNKNOWN INDICATION
     Dosage: 600 MILLIGRAM, ONCE A DAY
     Route: 048
     Dates: start: 20170331, end: 20170409
  30. CAPECITABINE. [Suspect]
     Active Substance: CAPECITABINE
     Dosage: 4300 MILLIGRAM, 3 WEEK
     Route: 048
     Dates: start: 20151218
  31. CAPECITABINE. [Suspect]
     Active Substance: CAPECITABINE
     Dosage: 4300 MILLIGRAM, 3 WEEK
     Route: 048
     Dates: start: 20160108
  32. BEVACIZUMAB. [Suspect]
     Active Substance: BEVACIZUMAB
     Indication: COLORECTAL CANCER METASTATIC
     Dosage: 712.5 MILLIGRAM, 3 WEEK
     Route: 042
     Dates: start: 20151127
  33. BEVACIZUMAB. [Suspect]
     Active Substance: BEVACIZUMAB
     Dosage: 712.5 MILLIGRAM, 3 WEEK
     Route: 042
     Dates: start: 20160129
  34. BEVACIZUMAB. [Suspect]
     Active Substance: BEVACIZUMAB
     Dosage: 645 MILLIGRAM, 3 WEEK
     Route: 042
     Dates: start: 20161014
  35. BEVACIZUMAB. [Suspect]
     Active Substance: BEVACIZUMAB
     Dosage: 600 MILLIGRAM, 3 WEEK
     Route: 042
     Dates: start: 20161223
  36. BEVACIZUMAB. [Suspect]
     Active Substance: BEVACIZUMAB
     Dosage: 600 MILLIGRAM, 3 WEEK
     Route: 042
     Dates: start: 20170621
  37. MARCUMAR [Concomitant]
     Active Substance: PHENPROCOUMON
     Indication: ATRIAL FIBRILLATION
     Dosage: ACCORDING TO QUICK VALUE
     Route: 048
  38. OPIUM. [Concomitant]
     Active Substance: OPIUM
     Indication: PRODUCT USED FOR UNKNOWN INDICATION
     Dosage: UNK
     Route: 048
     Dates: start: 20161223
  39. BETAISODONA [Concomitant]
     Active Substance: POVIDONE-IODINE
     Indication: NAIL BED INFLAMMATION
     Dosage: 3 UNK, ONCE A DAY
     Route: 065
     Dates: start: 20161223, end: 20170113
  40. VOLTAREN [Concomitant]
     Active Substance: DICLOFENAC SODIUM
     Indication: OEDEMA PERIPHERAL
     Dosage: UNK
     Route: 065
  41. CAPECITABINE. [Suspect]
     Active Substance: CAPECITABINE
     Dosage: 4000 MILLIGRAM, 3 WEEK
     Route: 048
     Dates: start: 20160902
  42. MARCUMAR [Concomitant]
     Active Substance: PHENPROCOUMON
     Dosage: UNK
     Route: 058
     Dates: start: 20151218, end: 20160922
  43. CIPROFLOXACIN. [Concomitant]
     Active Substance: CIPROFLOXACIN
     Dosage: 500 MILLIGRAM, ONCE A DAY
     Route: 048
     Dates: start: 20170512, end: 20170516
  44. DEXAMETHASONE. [Concomitant]
     Active Substance: DEXAMETHASONE
     Indication: INFECTION
     Dosage: 8 MILLIGRAM, DAY 1 AND 2 OF CHEMOTHERAPY
     Route: 048
     Dates: start: 20161128, end: 20170805
  45. THIAMINE. [Concomitant]
     Active Substance: THIAMINE
     Indication: PRODUCT USED FOR UNKNOWN INDICATION
     Dosage: 200 MILLIGRAM
     Route: 048
     Dates: start: 20170123
  46. CAPECITABINE. [Suspect]
     Active Substance: CAPECITABINE
     Indication: COLORECTAL CANCER
     Dosage: 4300 MILLIGRAM, 3 WEEK
     Route: 048
     Dates: start: 20151127, end: 20160512
  47. BEVACIZUMAB. [Suspect]
     Active Substance: BEVACIZUMAB
     Dosage: 645 MILLIGRAM, 3 WEEK
     Route: 042
     Dates: start: 20160812
  48. NITRENDIPIN [Concomitant]
     Active Substance: NITRENDIPINE
     Indication: HYPERTENSION
     Dosage: 20 MILLIGRAM, ONCE A DAY
     Route: 048
     Dates: start: 2007
  49. HCTZ [Concomitant]
     Active Substance: HYDROCHLOROTHIAZIDE
     Indication: HYPERTENSION
     Dosage: 25 MILLIGRAM, ONCE A DAY
     Route: 048
     Dates: start: 20150909
  50. CEFPODOXIME [Suspect]
     Active Substance: CEFPODOXIME
     Indication: COLORECTAL CANCER
     Dosage: 4300 MILLIGRAM, 3 WEEK
     Route: 048
     Dates: start: 20151127, end: 20160512
  51. BEVACIZUMAB. [Suspect]
     Active Substance: BEVACIZUMAB
     Dosage: 645 MILLIGRAM, 3 WEEK
     Route: 042
     Dates: start: 20161104
  52. BISOPROLOL [Concomitant]
     Active Substance: BISOPROLOL
     Indication: HYPERTENSION
     Dosage: 10 MILLIGRAM, ONCE A DAY
     Route: 048
     Dates: start: 2001
  53. ATROPIN [Concomitant]
     Active Substance: ATROPINE
     Indication: CHOLINERGIC SYNDROME
     Dosage: 0.25 MILLIGRAM (CYCLICAL, PRIOR TO CHEMOTHERAPY WITH IRINOTECAN)
     Route: 058
     Dates: start: 20161128, end: 20170804
  54. IBUPROFEN. [Concomitant]
     Active Substance: IBUPROFEN
     Indication: PRODUCT USED FOR UNKNOWN INDICATION
     Dosage: 600 MILLIGRAM
     Route: 048
     Dates: start: 20160226
  55. MACROGOL [Concomitant]
     Active Substance: POLYETHYLENE GLYCOLS
     Indication: CONSTIPATION
     Dosage: 1 DOSAGE FORM, ONCE A DAY
     Route: 048
     Dates: start: 20160426
  56. MACROGOL [Concomitant]
     Active Substance: POLYETHYLENE GLYCOLS
     Dosage: 3 DOSAGE FORM, ONCE A DAY
     Route: 048
     Dates: start: 20160426

REACTIONS (30)
  - Prostatitis [Recovered/Resolved]
  - Nausea [Not Recovered/Not Resolved]
  - Decreased appetite [Recovered/Resolved]
  - Sinus tachycardia [Recovered/Resolved]
  - Polyneuropathy [Not Recovered/Not Resolved]
  - Mucosal inflammation [Recovered/Resolved]
  - Nail bed inflammation [Unknown]
  - Fatigue [Not Recovered/Not Resolved]
  - Dry mouth [Not Recovered/Not Resolved]
  - Insomnia [Recovered/Resolved]
  - Prothrombin time prolonged [Recovered/Resolved]
  - Blood bilirubin increased [Not Recovered/Not Resolved]
  - Taste disorder [Recovered/Resolved]
  - Dyspnoea [Recovered/Resolved]
  - Jaundice [Unknown]
  - Gamma-glutamyltransferase increased [Not Recovered/Not Resolved]
  - Visual impairment [Unknown]
  - Oedema peripheral [Not Recovered/Not Resolved]
  - Constipation [Recovered/Resolved]
  - Hip arthroplasty [Not Recovered/Not Resolved]
  - Weight decreased [Not Recovered/Not Resolved]
  - Palmar-plantar erythrodysaesthesia syndrome [Recovered/Resolved]
  - Alopecia [Not Recovered/Not Resolved]
  - Blood uric acid increased [Recovered/Resolved]
  - Proteinuria [Not Recovered/Not Resolved]
  - Skin ulcer [Not Recovered/Not Resolved]
  - Pain in extremity [Not Recovered/Not Resolved]
  - Incisional hernia [Unknown]
  - Flank pain [Recovered/Resolved]
  - Cystitis [Not Recovered/Not Resolved]

NARRATIVE: CASE EVENT DATE: 20151127
